FAERS Safety Report 18437998 (Version 1)
Quarter: 2020Q4

REPORT INFORMATION
  Report Type: Report from Study
  Country: CL (occurrence: CL)
  Receive Date: 20201028
  Receipt Date: 20201028
  Transmission Date: 20210114
  Serious: Yes (Other)
  Sender: FDA-Public Use
  Company Number: CL-BRISTOL-MYERS SQUIBB COMPANY-BMS-2020-015434

PATIENT
  Age: 51 Year
  Sex: Female

DRUGS (3)
  1. PARACETAMOL [Concomitant]
     Active Substance: ACETAMINOPHEN
     Indication: PRODUCT USED FOR UNKNOWN INDICATION
     Dosage: UNK
     Route: 065
  2. DICLOFENAC [Concomitant]
     Active Substance: DICLOFENAC
     Indication: PRODUCT USED FOR UNKNOWN INDICATION
     Dosage: UNK
     Route: 065
  3. ABATACEPT [Suspect]
     Active Substance: ABATACEPT
     Indication: RHEUMATOID ARTHRITIS
     Dosage: 125 MILLIGRAM, QWK
     Route: 058
     Dates: start: 20200203

REACTIONS (7)
  - Fatigue [Recovered/Resolved]
  - Inflammation [Recovering/Resolving]
  - Thrombosis [Recovering/Resolving]
  - Dysphonia [Not Recovered/Not Resolved]
  - Dizziness [Not Recovered/Not Resolved]
  - Peripheral swelling [Unknown]
  - Muscle spasms [Unknown]

NARRATIVE: CASE EVENT DATE: 20200210
